FAERS Safety Report 21493044 (Version 3)
Quarter: 2022Q4

REPORT INFORMATION
  Report Type: Report from Study
  Country: JP (occurrence: JP)
  Receive Date: 20221021
  Receipt Date: 20221215
  Transmission Date: 20230112
  Serious: Yes (Hospitalization)
  Sender: FDA-Public Use
  Company Number: JP-Eisai-202209320_PENT_C_1

PATIENT
  Age: 75 Year
  Sex: Male
  Weight: 55 kg

DRUGS (11)
  1. E-7386 [Suspect]
     Active Substance: E-7386
     Indication: Hepatic cancer
     Route: 048
     Dates: start: 20220915, end: 20221002
  2. E-7386 [Suspect]
     Active Substance: E-7386
     Route: 048
     Dates: start: 20221004, end: 20221007
  3. LENVATINIB [Suspect]
     Active Substance: LENVATINIB
     Indication: Hepatic cancer
     Route: 048
     Dates: start: 20220921, end: 20221002
  4. LENVATINIB [Suspect]
     Active Substance: LENVATINIB
     Route: 048
     Dates: start: 20221004, end: 20221007
  5. CANDESARTAN [Concomitant]
     Active Substance: CANDESARTAN
     Indication: Hypertension
     Route: 048
     Dates: start: 2021
  6. AMLODIPINE [Concomitant]
     Active Substance: AMLODIPINE BESYLATE
     Indication: Hypertension
     Route: 048
     Dates: start: 2021
  7. ZONISAMIDE [Concomitant]
     Active Substance: ZONISAMIDE
     Indication: Epilepsy
     Route: 048
     Dates: start: 20100513
  8. VEMLIDY [Concomitant]
     Active Substance: TENOFOVIR ALAFENAMIDE FUMARATE
     Indication: Hepatitis B
     Route: 048
     Dates: start: 20220317
  9. KYTRIL [Concomitant]
     Active Substance: GRANISETRON HYDROCHLORIDE
     Indication: Nausea
     Route: 048
     Dates: start: 20220916, end: 20221010
  10. MAGNESIUM OXIDE [Concomitant]
     Active Substance: MAGNESIUM OXIDE
     Indication: Constipation
     Route: 048
     Dates: start: 20220920
  11. SODIUM PICOSULFATE [Concomitant]
     Active Substance: SODIUM PICOSULFATE
     Indication: Constipation
     Route: 048
     Dates: start: 20220919

REACTIONS (1)
  - Rash maculo-papular [Recovered/Resolved]

NARRATIVE: CASE EVENT DATE: 20221006
